FAERS Safety Report 23668362 (Version 6)
Quarter: 2024Q2

REPORT INFORMATION
  Report Type: Spontaneous
  Country: US (occurrence: US)
  Receive Date: 20240325
  Receipt Date: 20240513
  Transmission Date: 20240716
  Serious: Yes (Other)
  Sender: FDA-Public Use
  Company Number: US-PFIZER INC-202400066825

PATIENT
  Sex: Female

DRUGS (1)
  1. GENOTROPIN [Suspect]
     Active Substance: SOMATROPIN
     Dosage: UNK

REACTIONS (5)
  - Accidental exposure to product [Recovering/Resolving]
  - Exposure via eye contact [Recovering/Resolving]
  - Device leakage [Unknown]
  - Device breakage [Unknown]
  - Device defective [Unknown]
